FAERS Safety Report 5938961-1 (Version None)
Quarter: 2008Q4

REPORT INFORMATION
  Report Type: 
  Country: None (occurrence: None)
  Receive Date: 20081103
  Receipt Date: 20081028
  Transmission Date: 20090506
  Serious: Yes (Other)
  Sender: FDA-Public Use
  Company Number: US-ALLERGAN-0809524US

PATIENT
  Sex: Female

DRUGS (2)
  1. BOTOX [Suspect]
     Indication: MUSCLE SPASTICITY
     Dosage: 190 UNITS, SINGLE
     Route: 030
     Dates: start: 20080722, end: 20080722
  2. BOTOX [Suspect]
     Indication: PAIN

REACTIONS (4)
  - CHEST PAIN [None]
  - PAIN [None]
  - SENSORY DISTURBANCE [None]
  - WRONG TECHNIQUE IN DRUG USAGE PROCESS [None]
